FAERS Safety Report 5496391-3 (Version None)
Quarter: 2007Q4

REPORT INFORMATION
  Report Type: 
  Country: None (occurrence: None)
  Receive Date: 20071025
  Receipt Date: 20070403
  Transmission Date: 20080405
  Serious: No
  Sender: FDA-Public Use
  Company Number: A0645767A

PATIENT
  Age: 71 Year
  Sex: Male

DRUGS (6)
  1. ADVAIR DISKUS 100/50 [Suspect]
     Indication: ASTHMA
     Dosage: 1PUFF TWICE PER DAY
     Route: 055
     Dates: start: 20070101
  2. SPIRIVA [Concomitant]
  3. VITAMIN CAP [Concomitant]
  4. FISH OIL [Concomitant]
  5. SINGULAIR [Concomitant]
  6. MAXAIR [Concomitant]

REACTIONS (3)
  - CHILLS [None]
  - FATIGUE [None]
  - NAUSEA [None]
